FAERS Safety Report 4848637-X (Version None)
Quarter: 2005Q4

REPORT INFORMATION
  Report Type: 
  Country: None (occurrence: None)
  Receive Date: 20051115
  Receipt Date: 20051012
  Transmission Date: 20060501
  Serious: Yes (Other)
  Sender: FDA-Public Use
  Company Number: 421112

PATIENT
  Age: 52 Year
  Sex: Female
  Weight: 55.3 kg

DRUGS (4)
  1. PEGASYS [Suspect]
     Indication: HEPATITIS C
     Dosage: 180 MCG 1 PER 1 WEEK SUBCUTANEOUS
     Route: 058
     Dates: start: 20041102, end: 20050815
  2. PROCRIT [Suspect]
     Indication: ANAEMIA
     Dosage: 10000 IU 1 PER WEEK SUBCUTANEOUS
     Route: 058
     Dates: start: 20050315
  3. COPEGUS [Suspect]
     Indication: HEPATITIS C
     Dosage: 600 MG 2 PER 1 DAY ORAL
     Route: 048
     Dates: start: 20041102, end: 20050815
  4. ACIPHEX [Concomitant]

REACTIONS (1)
  - ANAEMIA [None]
